FAERS Safety Report 4432293-9 (Version None)
Quarter: 2004Q3

REPORT INFORMATION
  Report Type: 
  Country: None (occurrence: None)
  Receive Date: 20040820
  Receipt Date: 20040806
  Transmission Date: 20050211
  Serious: Yes (Death)
  Sender: FDA-Public Use
  Company Number: 2004IM000795

PATIENT
  Age: 47 Year
  Sex: Male
  Weight: 132 kg

DRUGS (13)
  1. INTERFERON GAMMA-1B [Suspect]
     Indication: HEPATITIS C
     Dosage: 100 UG; TIW, SUBCUTANEOUS
     Route: 058
     Dates: start: 20031020, end: 20040725
  2. PEG INTERFERON ALPHA-2A [Suspect]
     Indication: HEPATITIS C
     Dosage: 180 UG; QW; SUBCUTANEOUS
     Route: 058
     Dates: start: 20031020, end: 20040725
  3. RIBAVIRIN [Concomitant]
  4. LEXAPRO [Concomitant]
  5. LACTULOSE [Concomitant]
  6. ALDACTONE [Concomitant]
  7. WELLBUTRIN SR [Concomitant]
  8. PROVIGIL [Concomitant]
  9. TRAZODONE [Concomitant]
  10. PRINIVIL [Concomitant]
  11. IBUPROFEN [Concomitant]
  12. ZANTAC [Concomitant]
  13. TYLENOL [Concomitant]

REACTIONS (10)
  - ARTHRALGIA [None]
  - CHEST INJURY [None]
  - CHILLS [None]
  - COMPLETED SUICIDE [None]
  - DYSPEPSIA [None]
  - FATIGUE [None]
  - GUN SHOT WOUND [None]
  - MYALGIA [None]
  - NAUSEA [None]
  - PYREXIA [None]
